FAERS Safety Report 4686079-0 (Version None)
Quarter: 2005Q2

REPORT INFORMATION
  Report Type: 
  Country: None (occurrence: None)
  Receive Date: 20050609
  Receipt Date: 19900212
  Transmission Date: 20051028
  Serious: Yes (Death, Other)
  Sender: FDA-Public Use
  Company Number: 199020136HAG

PATIENT
  Age: 62 Year
  Sex: Male
  Weight: 62 kg

DRUGS (6)
  1. LASIX [Suspect]
     Route: 048
  2. AMIODARONE [Suspect]
     Indication: CARDIAC DISORDER
     Route: 048
     Dates: start: 19840323, end: 19870321
  3. CAPTOPRIL [Suspect]
     Dates: start: 19830101
  4. OXAZEPAM [Suspect]
     Route: 048
  5. SLOW-K [Suspect]
     Dosage: DOSE: 2DF
     Route: 048
  6. NITRAZEPAM [Suspect]
     Dosage: DOSE: 1DF
     Route: 048

REACTIONS (8)
  - ASTHENIA [None]
  - COORDINATION ABNORMAL [None]
  - HEPATIC FUNCTION ABNORMAL [None]
  - HYPERTHYROIDISM [None]
  - SEPSIS [None]
  - TREMOR [None]
  - VENTRICULAR FIBRILLATION [None]
  - VOMITING [None]
